FAERS Safety Report 22098445 (Version 5)
Quarter: 2024Q2

REPORT INFORMATION
  Report Type: Report from Study
  Country: US (occurrence: US)
  Receive Date: 20230315
  Receipt Date: 20240418
  Transmission Date: 20240716
  Serious: Yes (Other)
  Sender: FDA-Public Use
  Company Number: US-TAKEDA-2022TUS034268

PATIENT
  Age: 44 Year
  Sex: Female
  Weight: 164.2 kg

DRUGS (3)
  1. BRIGATINIB [Suspect]
     Active Substance: BRIGATINIB
     Indication: Lung neoplasm malignant
     Dosage: 180 MILLIGRAM, QD
     Route: 048
     Dates: start: 20220114
  2. BRIGATINIB [Suspect]
     Active Substance: BRIGATINIB
     Dosage: 180 MILLIGRAM, QD
     Route: 048
  3. BRIGATINIB [Suspect]
     Active Substance: BRIGATINIB
     Dosage: 180 MILLIGRAM, QD
     Route: 048

REACTIONS (18)
  - Neuropathy peripheral [Unknown]
  - Haemorrhage [Unknown]
  - Lung carcinoma cell type unspecified recurrent [Unknown]
  - Ear infection [Unknown]
  - Middle ear effusion [Unknown]
  - Lethargy [Unknown]
  - Feeling abnormal [Unknown]
  - Mammogram abnormal [Unknown]
  - COVID-19 [Recovered/Resolved]
  - Glucose tolerance impaired [Unknown]
  - Pleural effusion [Unknown]
  - Memory impairment [Unknown]
  - Arthralgia [Unknown]
  - Nausea [Unknown]
  - Vomiting [Unknown]
  - Insomnia [Unknown]
  - Dyspnoea [Unknown]
  - Product dose omission issue [Unknown]

NARRATIVE: CASE EVENT DATE: 20221201
